FAERS Safety Report 4565914-0 (Version None)
Quarter: 2005Q1

REPORT INFORMATION
  Report Type: 
  Country: None (occurrence: None)
  Receive Date: 20050128
  Receipt Date: 20050112
  Transmission Date: 20050727
  Serious: Yes (Other)
  Sender: FDA-Public Use
  Company Number: S05-FRA-00273-01

PATIENT
  Age: 38 Year
  Sex: Female

DRUGS (3)
  1. CITALOPRAM HYDROBROMIDE [Suspect]
     Indication: DEPRESSION
     Dosage: 10 MG QD PO
     Route: 048
  2. CHLORPROMAZINE HCL [Suspect]
     Dosage: 0.25 QD PO
     Route: 048
  3. CLONAZEPAM [Concomitant]

REACTIONS (3)
  - DRUG EXPOSURE DURING PREGNANCY [None]
  - POLYHYDRAMNIOS [None]
  - PREMATURE BABY [None]
